FAERS Safety Report 19209950 (Version 1)
Quarter: 2021Q2

REPORT INFORMATION
  Report Type: Report from Study
  Country: None (occurrence: US)
  Receive Date: 20210504
  Receipt Date: 20210504
  Transmission Date: 20210717
  Serious: Yes (Other)
  Sender: FDA-Public Use
  Company Number: US-ABBVIE-21K-163-3885164-00

PATIENT
  Age: 52 Year
  Sex: Female

DRUGS (1)
  1. HUMIRA [Suspect]
     Active Substance: ADALIMUMAB
     Indication: PRODUCT USED FOR UNKNOWN INDICATION
     Route: 058
     Dates: start: 20160429

REACTIONS (5)
  - Middle ear effusion [Unknown]
  - Ear pain [Unknown]
  - Ear infection [Unknown]
  - Tympanic membrane perforation [Unknown]
  - Nail infection [Unknown]

NARRATIVE: CASE EVENT DATE: 20200601
